FAERS Safety Report 7082367-1 (Version None)
Quarter: 2010Q4

REPORT INFORMATION
  Report Type: 
  Country: None (occurrence: None)
  Receive Date: 20101104
  Receipt Date: 20101026
  Transmission Date: 20110411
  Serious: No
  Sender: FDA-Public Use
  Company Number: US-BIOGENIDEC-2010BI037808

PATIENT
  Sex: Female

DRUGS (1)
  1. TYSABRI [Suspect]
     Indication: MULTIPLE SCLEROSIS
     Route: 042
     Dates: start: 20080730

REACTIONS (6)
  - BALANCE DISORDER [None]
  - COGNITIVE DISORDER [None]
  - INFLUENZA LIKE ILLNESS [None]
  - INTERVERTEBRAL DISC DEGENERATION [None]
  - SPEECH DISORDER [None]
  - SPINAL COLUMN STENOSIS [None]
